FAERS Safety Report 6959521-X (Version None)
Quarter: 2010Q3

REPORT INFORMATION
  Report Type: 
  Country: None (occurrence: None)
  Receive Date: 20100827
  Receipt Date: 20100813
  Transmission Date: 20110219
  Serious: Yes (Other)
  Sender: FDA-Public Use
  Company Number: 2010PL000140

PATIENT
  Age: 46 Year
  Sex: Male

DRUGS (7)
  1. PROLEUKIN [Suspect]
     Indication: HIV INFECTION
     Dosage: 7.5 MIOU; X5 DAYS EVERY 2 MONTHS; SC
     Route: 058
  2. DIDANOSINE [Concomitant]
  3. STAVUDINE [Concomitant]
  4. EFAVIRENZ [Concomitant]
  5. ACETAMINOPHEN [Concomitant]
  6. PROCHLORPERAZINE MALEATE [Concomitant]
  7. PSEUDOEPHEDRINE HYDROCHLORIDE [Concomitant]

REACTIONS (7)
  - ACUTE FEBRILE NEUTROPHILIC DERMATOSIS [None]
  - FATIGUE [None]
  - INJECTION SITE MASS [None]
  - POST INFLAMMATORY PIGMENTATION CHANGE [None]
  - PSEUDOLYMPHOMA [None]
  - SKIN EXFOLIATION [None]
  - SKIN OEDEMA [None]
